FAERS Safety Report 7632203-7 (Version None)
Quarter: 2011Q3

REPORT INFORMATION
  Report Type: 
  Country: None (occurrence: None)
  Receive Date: 20110725
  Receipt Date: 20100709
  Transmission Date: 20111222
  Serious: No
  Sender: FDA-Public Use
  Company Number: US-BRISTOL-MYERS SQUIBB COMPANY-15148679

PATIENT
  Age: 40 Year
  Sex: Male

DRUGS (3)
  1. WARFARIN SODIUM [Suspect]
  2. JANTOVEN [Suspect]
  3. COUMADIN [Suspect]
     Indication: DEEP VEIN THROMBOSIS
     Dosage: 1 DF=5MG/4DAYS,7.5MG/3DAYS
     Route: 048
     Dates: start: 20091001

REACTIONS (2)
  - WEIGHT DECREASED [None]
  - MALAISE [None]
